FAERS Safety Report 9840095 (Version 1)
Quarter: 2013Q4

REPORT INFORMATION
  Report Type: Spontaneous
  Country: US (occurrence: None)
  Receive Date: 20131211
  Receipt Date: 20131211
  Transmission Date: 20140711
  Serious: No
  Sender: FDA-Public Use
  Company Number: ALL1-2012-06560

PATIENT
  Age: 31 Year
  Sex: Female
  Weight: 56.7 kg

DRUGS (1)
  1. FIRAZYR [Suspect]
     Indication: HEREDITARY ANGIOEDEMA
     Dosage: 30 MG, OTHER (Q 6 HOURS), SUBCUTANEOUS
     Route: 058

REACTIONS (2)
  - Swelling [None]
  - Drug effect decreased [None]
